FAERS Safety Report 13065261 (Version 3)
Quarter: 2017Q1

REPORT INFORMATION
  Report Type: Spontaneous
  Country: US (occurrence: US)
  Receive Date: 20161227
  Receipt Date: 20170127
  Transmission Date: 20170428
  Serious: Yes (Other)
  Sender: FDA-Public Use
  Company Number: US-PFIZER INC-2016582937

PATIENT
  Age: 44 Year
  Sex: Female

DRUGS (2)
  1. LETROZOLE. [Concomitant]
     Active Substance: LETROZOLE
     Dosage: UNK
  2. IBRANCE [Suspect]
     Active Substance: PALBOCICLIB
     Indication: BREAST CANCER METASTATIC
     Dosage: 125 MG, CYCLIC (TAKE 1 CAPSULE EVERY DAY FOR 21 DAYS THEN TAKE 7 DAYS OFF AS DIRECTED)
     Route: 048
     Dates: start: 20160613

REACTIONS (2)
  - Ligament sprain [Unknown]
  - Neoplasm progression [Unknown]
